FAERS Safety Report 5386165-6 (Version None)
Quarter: 2007Q3

REPORT INFORMATION
  Report Type: 
  Country: None (occurrence: None)
  Receive Date: 20070711
  Receipt Date: 20070711
  Transmission Date: 20080115
  Serious: Yes (Hospitalization)
  Sender: FDA-Public Use
  Company Number: None

PATIENT
  Age: 34 Year
  Sex: Male

DRUGS (6)
  1. CLOZARIL [Suspect]
     Indication: SCHIZOPHRENIA
     Dosage: 100MG PO BID
     Route: 048
     Dates: start: 20070415, end: 20070508
  2. ALBUTEROL [Concomitant]
  3. DEPAKOTE ER [Concomitant]
  4. PAXIL [Concomitant]
  5. SEROQUEL [Concomitant]
  6. EFFEXOR XR [Concomitant]

REACTIONS (5)
  - HEART RATE INCREASED [None]
  - MYOCARDITIS [None]
  - NAUSEA [None]
  - PYREXIA [None]
  - WHITE BLOOD CELL COUNT INCREASED [None]
